FAERS Safety Report 8012584-5 (Version None)
Quarter: 2011Q4

REPORT INFORMATION
  Report Type: 
  Country: None (occurrence: None)
  Receive Date: 20111223
  Receipt Date: 20111223
  Transmission Date: 20120403
  Serious: Yes (Other)
  Sender: FDA-Public Use
  Company Number: None

PATIENT
  Sex: Female
  Weight: 47.6277 kg

DRUGS (1)
  1. BONIVA [Suspect]
     Indication: BONE DISORDER
     Dosage: 150 MG ONCE PER MONTH
     Dates: start: 20090701, end: 20111201

REACTIONS (7)
  - DYSPEPSIA [None]
  - PAIN IN JAW [None]
  - GASTRIC DISORDER [None]
  - SENSATION OF FOREIGN BODY [None]
  - ARTHRALGIA [None]
  - DYSPHAGIA [None]
  - MUSCLE SPASMS [None]
